FAERS Safety Report 8061535 (Version 3)
Quarter: 2019Q1

REPORT INFORMATION
  Report Type: Spontaneous
  Country: FR (occurrence: FR)
  Receive Date: 20110729
  Receipt Date: 20190305
  Transmission Date: 20190418
  Serious: Yes (Death, Life-Threatening, Hospitalization, Other)
  Sender: FDA-Public Use
  Company Number: FR-ELI_LILLY_AND_COMPANY-FR201107004430

PATIENT
  Age: 70 Year
  Sex: Female
  Weight: 66 kg

DRUGS (10)
  1. CITALOPRAM [Concomitant]
     Active Substance: CITALOPRAM HYDROBROMIDE
     Dosage: 20 MG, 2 DF IN THE MORNING + 1 DF AT NOON
     Dates: start: 2005, end: 20110704
  2. VFEND [Concomitant]
     Active Substance: VORICONAZOLE
     Indication: ASPERGILLUS INFECTION
     Dosage: 200 MG, BID
     Route: 048
     Dates: start: 20110628, end: 20110702
  3. LOXAPINE SUCCINATE. [Concomitant]
     Active Substance: LOXAPINE SUCCINATE
     Indication: BIPOLAR DISORDER
     Dosage: 40 DF, 10 DROPS IN THE MORNING AND AT NOON + 20 DROPS IN THE EVENING
     Route: 048
     Dates: start: 20110629, end: 20110704
  4. LAMOTRIGINE. [Concomitant]
     Active Substance: LAMOTRIGINE
     Indication: BIPOLAR DISORDER
     Dosage: 25 MG, 3 DF IN THE MORNING + 2 DF IN THE EVENING
     Route: 048
     Dates: start: 2005
  5. MIRTAZAPINE. [Concomitant]
     Active Substance: MIRTAZAPINE
     Dosage: 15 MG, BID
     Dates: start: 2003, end: 20110702
  6. RAMIPRIL. [Concomitant]
     Active Substance: RAMIPRIL
     Dosage: 5 MG, QD
     Dates: start: 2003, end: 20110704
  7. CYAMEMAZINE [Concomitant]
     Active Substance: CYAMEMAZINE
     Dosage: 25 MG, QD
     Dates: start: 2001, end: 20110704
  8. ZYPREXA [Suspect]
     Active Substance: OLANZAPINE
     Indication: BIPOLAR DISORDER
     Dosage: 10 MG, BID
     Route: 048
     Dates: start: 2001
  9. VFEND [Concomitant]
     Active Substance: VORICONAZOLE
     Indication: ASPERGILLUS INFECTION
     Dosage: UNK, UNKNOWN
     Route: 042
     Dates: start: 20110627, end: 20110627
  10. FUROSEMIDE. [Concomitant]
     Active Substance: FUROSEMIDE
     Dosage: 20 MG, QD
     Dates: start: 2003, end: 20110704

REACTIONS (9)
  - General physical health deterioration [Fatal]
  - Renal failure [Not Recovered/Not Resolved]
  - Bronchitis [Not Recovered/Not Resolved]
  - Lymphopenia [Not Recovered/Not Resolved]
  - Seizure [Not Recovered/Not Resolved]
  - Serotonin syndrome [Not Recovered/Not Resolved]
  - Chronic lymphocytic leukaemia [Not Recovered/Not Resolved]
  - Death [Fatal]
  - Pancytopenia [Not Recovered/Not Resolved]

NARRATIVE: CASE EVENT DATE: 20110702
